FAERS Safety Report 22136045 (Version 2)
Quarter: 2023Q2

REPORT INFORMATION
  Report Type: Spontaneous
  Country: FR (occurrence: FR)
  Receive Date: 20230324
  Receipt Date: 20230403
  Transmission Date: 20230722
  Serious: Yes (Disabling, Other)
  Sender: FDA-Public Use
  Company Number: FR-BAYER-2023A035544

PATIENT

DRUGS (1)
  1. CIPROFLOXACIN [Suspect]
     Active Substance: CIPROFLOXACIN
     Indication: Off label use

REACTIONS (12)
  - Nervous system disorder [Not Recovered/Not Resolved]
  - Neuropsychiatric symptoms [Not Recovered/Not Resolved]
  - Musculoskeletal disorder [Not Recovered/Not Resolved]
  - Cardiac disorder [None]
  - Aneurysm [None]
  - Aortic dissection [None]
  - Muscle disorder [None]
  - Pain in extremity [None]
  - Tendon rupture [None]
  - Off label use [None]
  - Tendonitis [None]
  - Arthralgia [None]
